FAERS Safety Report 5018334-9 (Version None)
Quarter: 2006Q2

REPORT INFORMATION
  Report Type: 
  Country: None (occurrence: None)
  Receive Date: 20060530
  Receipt Date: 20050609
  Transmission Date: 20061013
  Serious: Yes (Life-Threatening, Other)
  Sender: FDA-Public Use
  Company Number: 2005076465

PATIENT
  Age: 23 Year
  Sex: Male
  Weight: 70 kg

DRUGS (6)
  1. LYRICA [Suspect]
     Indication: EPILEPSY
     Dosage: 300 MG (100 MG, 3 IN 1 D), ORAL
     Route: 048
     Dates: start: 20041001
  2. OMEPRAZOLE [Concomitant]
  3. FEXOFENADINE HCL [Concomitant]
  4. ATARAX [Concomitant]
  5. PROPRANOLOL [Concomitant]
  6. LAMICTAL [Concomitant]

REACTIONS (6)
  - ABNORMAL BEHAVIOUR [None]
  - DEPRESSION [None]
  - MOOD ALTERED [None]
  - MULTI-ORGAN FAILURE [None]
  - OVERDOSE [None]
  - SUICIDE ATTEMPT [None]
